FAERS Safety Report 8425480-6 (Version None)
Quarter: 2012Q2

REPORT INFORMATION
  Report Type: 
  Country: None (occurrence: None)
  Receive Date: 20120604
  Receipt Date: 20120521
  Transmission Date: 20120825
  Serious: Yes (Hospitalization, Other)
  Sender: FDA-Public Use
  Company Number: IN-022717

PATIENT
  Age: 57 Year
  Sex: Male

DRUGS (4)
  1. VITAFACOL (SORBITOL) [Concomitant]
  2. OFATUMUMAB (OFATUMUMAB) (INJECTION) [Suspect]
     Indication: CHRONIC LYMPHOCYTIC LEUKAEMIA
     Dosage: 300 MG DAY 1, 1000 MG DAY 8 FOLLOWED BY 1000 MG EVERY 28 DAYS
     Route: 042
     Dates: start: 20110324
  3. ALBENDAZOLE [Concomitant]
  4. CHLORAMBUCIL (CHLORAMBUCIL) (10 MILLIGRAM(S)/ SQ. METER, UNKNOWN) [Suspect]
     Indication: CHRONIC LYMPHOCYTIC LEUKAEMIA
     Dosage: 10 MGM2 DAYS 1-7 EVERY 28 DAYS (10 MG/M2)
     Route: 048
     Dates: start: 20110324

REACTIONS (6)
  - FAECES DISCOLOURED [None]
  - PLATELET COUNT DECREASED [None]
  - WHITE BLOOD CELL COUNT DECREASED [None]
  - PALLOR [None]
  - ANAEMIA [None]
  - ASCARIASIS [None]
